FAERS Safety Report 10759472 (Version 4)
Quarter: 2015Q3

REPORT INFORMATION
  Report Type: Spontaneous
  Country: US (occurrence: US)
  Receive Date: 20150203
  Receipt Date: 20150713
  Transmission Date: 20151125
  Serious: Yes (Death, Hospitalization, Other)
  Sender: FDA-Public Use
  Company Number: US-GLAXOSMITHKLINE-US2014GSK049154

PATIENT
  Age: 89 Year
  Sex: Female

DRUGS (2)
  1. PROMACTA [Suspect]
     Active Substance: ELTROMBOPAG OLAMINE
     Indication: IMMUNE THROMBOCYTOPENIC PURPURA
     Dosage: 150 MG, QD
     Route: 048
     Dates: start: 20140731
  2. PROMACTA [Suspect]
     Active Substance: ELTROMBOPAG OLAMINE
     Indication: APLASTIC ANAEMIA
     Dosage: UNK

REACTIONS (5)
  - Respiratory failure [Unknown]
  - Rash pruritic [Not Recovered/Not Resolved]
  - Skin haemorrhage [Recovered/Resolved]
  - Pneumonia [Fatal]
  - Rash [Unknown]

NARRATIVE: CASE EVENT DATE: 201412
